FAERS Safety Report 13161898 (Version 2)
Quarter: 2018Q1

REPORT INFORMATION
  Report Type: Spontaneous
  Country: US (occurrence: US)
  Receive Date: 20170130
  Receipt Date: 20180223
  Transmission Date: 20180508
  Serious: No
  Sender: FDA-Public Use
  Company Number: US-BIOGEN-2017BI00347454

PATIENT
  Sex: Male

DRUGS (1)
  1. TYSABRI [Suspect]
     Active Substance: NATALIZUMAB
     Indication: MULTIPLE SCLEROSIS
     Route: 065
     Dates: start: 20130411

REACTIONS (5)
  - Prescribed underdose [Unknown]
  - Multiple sclerosis relapse [Recovered/Resolved]
  - Intentional product use issue [Unknown]
  - Memory impairment [Recovered/Resolved]
  - Hypersomnia [Recovered/Resolved]
